FAERS Safety Report 6889299-X (Version None)
Quarter: 2010Q3

REPORT INFORMATION
  Report Type: 
  Country: None (occurrence: None)
  Receive Date: 20100730
  Receipt Date: 20080124
  Transmission Date: 20110219
  Serious: No
  Sender: FDA-Public Use
  Company Number: US-PFIZER INC-2007075203

PATIENT
  Sex: Female
  Weight: 64.86 kg

DRUGS (5)
  1. LIPITOR [Suspect]
     Indication: BLOOD CHOLESTEROL INCREASED
     Route: 048
     Dates: start: 20070516, end: 20071129
  2. LIPITOR [Suspect]
     Indication: MYALGIA
  3. TORSEMIDE [Concomitant]
     Indication: HYPERTENSION
     Route: 048
     Dates: start: 20060101
  4. ALISKIREN [Concomitant]
     Indication: FLUID RETENTION
     Route: 048
  5. POTASSIUM CHLORIDE [Concomitant]

REACTIONS (3)
  - MUSCULOSKELETAL CHEST PAIN [None]
  - MYALGIA [None]
  - PAIN IN EXTREMITY [None]
